FAERS Safety Report 9255308 (Version 2)
Quarter: 2014Q1

REPORT INFORMATION
  Report Type: Spontaneous
  Country: US (occurrence: None)
  Receive Date: 20121212
  Receipt Date: 20130314
  Transmission Date: 20141002
  Serious: No
  Sender: FDA-Public Use
  Company Number: 1209USA005231

PATIENT
  Age: 50 Year
  Sex: Male

DRUGS (4)
  1. VICTRELIS [Suspect]
     Indication: HEPATITIS C
     Route: 048
     Dates: start: 20120909
  2. PEGASYS [Suspect]
  3. RIBAPAK [Suspect]
  4. RIBASPHERE [Suspect]

REACTIONS (7)
  - Nausea [None]
  - Rash [None]
  - Pruritus [None]
  - Dry skin [None]
  - Fatigue [None]
  - Dyspnoea [None]
  - White blood cell count decreased [None]
